FAERS Safety Report 5711540-7 (Version None)
Quarter: 2008Q2

REPORT INFORMATION
  Report Type: 
  Country: None (occurrence: None)
  Receive Date: 20080418
  Receipt Date: 20080418
  Transmission Date: 20081010
  Serious: Yes (Hospitalization)
  Sender: FDA-Public Use
  Company Number: None

PATIENT
  Sex: Male

DRUGS (2)
  1. XOPENEX [Suspect]
     Indication: DYSPNOEA
     Dosage: 2 CUFFS Q 4-6H PRN INHAL
     Route: 055
     Dates: start: 20080324, end: 20080327
  2. XOPENEX [Suspect]
     Indication: WHEEZING
     Dosage: 2 CUFFS Q 4-6H PRN INHAL
     Route: 055
     Dates: start: 20080324, end: 20080327

REACTIONS (6)
  - DIZZINESS [None]
  - HYPERTENSION [None]
  - LOSS OF CONSCIOUSNESS [None]
  - PRURITUS [None]
  - SYNCOPE [None]
  - URTICARIA [None]
